FAERS Safety Report 24611599 (Version 1)
Quarter: 2024Q4

REPORT INFORMATION
  Report Type: Spontaneous
  Country: KR (occurrence: KR)
  Receive Date: 20241113
  Receipt Date: 20241113
  Transmission Date: 20250114
  Serious: Yes (Other)
  Sender: RANBAXY
  Company Number: KR-SUN PHARMACEUTICAL INDUSTRIES LTD-2024R1-478417

PATIENT
  Age: 74 Year
  Sex: Male

DRUGS (2)
  1. NAPROXEN [Suspect]
     Active Substance: NAPROXEN
     Indication: Spinal stenosis
     Dosage: 500 MILLIGRAM, BID
     Route: 065
  2. POLMACOXIB [Concomitant]
     Active Substance: POLMACOXIB
     Indication: Spinal stenosis
     Dosage: 2 MILLIGRAM
     Route: 065

REACTIONS (1)
  - Intestinal diaphragm disease [Unknown]
